FAERS Safety Report 6151896-7 (Version None)
Quarter: 2009Q2

REPORT INFORMATION
  Report Type: 
  Country: None (occurrence: None)
  Receive Date: 20090410
  Receipt Date: 20090401
  Transmission Date: 20091009
  Serious: Yes (Hospitalization)
  Sender: FDA-Public Use
  Company Number: US-JNJFOC-20090401390

PATIENT
  Sex: Female
  Weight: 33.38 kg

DRUGS (5)
  1. INFLIXIMAB [Suspect]
     Route: 042
  2. INFLIXIMAB [Suspect]
     Indication: INFLAMMATORY BOWEL DISEASE
     Route: 042
  3. 5-ASA [Concomitant]
     Route: 054
  4. FERROUS SULFATE TAB [Concomitant]
  5. ANTIBIOTICS [Concomitant]
     Indication: INFLAMMATORY BOWEL DISEASE

REACTIONS (4)
  - ENTEROCOCCAL INFECTION [None]
  - RETROPERITONEAL ABSCESS [None]
  - STAPHYLOCOCCAL INFECTION [None]
  - STREPTOCOCCAL INFECTION [None]
